FAERS Safety Report 16688059 (Version 1)
Quarter: 2019Q3

REPORT INFORMATION
  Report Type: Spontaneous
  Country: US (occurrence: US)
  Receive Date: 20190624
  Receipt Date: 20190624
  Transmission Date: 20191004
  Serious: Yes (Life-Threatening, Hospitalization)
  Sender: FDA-Public Use
  Company Number: None

PATIENT
  Age: 42 Year
  Sex: Male
  Weight: 111.13 kg

DRUGS (7)
  1. TESTERONE [Concomitant]
     Active Substance: TESTOSTERONE
  2. IRON SUPPLEMENT [Concomitant]
     Active Substance: IRON
  3. MULTIVITAMIN [Concomitant]
     Active Substance: VITAMINS
  4. VITAMIN C SUPPLEMENT [Concomitant]
     Active Substance: ASCORBIC ACID
  5. OMEPRAZOLE. [Concomitant]
     Active Substance: OMEPRAZOLE
  6. SUBLOCADE [Suspect]
     Active Substance: BUPRENORPHINE
     Indication: THERAPY CHANGE
     Dosage: ?          QUANTITY:1 INJECTION;OTHER ROUTE:INJECTION BY PHYSICIAN?
     Dates: start: 20190522, end: 20190525
  7. FISH OIL SUPPLEMENT [Concomitant]
     Active Substance: FISH OIL

REACTIONS (5)
  - Pneumonia [None]
  - Therapy change [None]
  - Amnesia [None]
  - Seizure [None]
  - Mental disorder [None]

NARRATIVE: CASE EVENT DATE: 20190522
